FAERS Safety Report 16178459 (Version 1)
Quarter: 2019Q2

REPORT INFORMATION
  Report Type: Report from Study
  Country: US (occurrence: US)
  Receive Date: 20190410
  Receipt Date: 20190410
  Transmission Date: 20190711
  Serious: Yes (Hospitalization)
  Sender: FDA-Public Use
  Company Number: US-UCBSA-2019013866

PATIENT
  Age: 34 Year
  Sex: Female
  Weight: 72.58 kg

DRUGS (11)
  1. CERTOLIZUMAB PEGOL RA [Suspect]
     Active Substance: CERTOLIZUMAB PEGOL
     Dosage: 200 MG, WEEKLY (QW)
     Route: 058
     Dates: start: 20180919, end: 20181023
  2. FIBER LAXATIVE [Concomitant]
     Active Substance: CALCIUM POLYCARBOPHIL
     Indication: PRODUCT USED FOR UNKNOWN INDICATION
     Dosage: 6 G, ONCE DAILY (QD)
     Route: 048
     Dates: start: 20180206, end: 20181106
  3. SYNTHROID [Concomitant]
     Active Substance: LEVOTHYROXINE SODIUM
     Indication: HYPOTHYROIDISM
     Dosage: 8 ?G, ONCE DAILY (QD)
     Route: 048
     Dates: start: 20180206, end: 20181106
  4. TUMS [Concomitant]
     Active Substance: CALCIUM CARBONATE
     Indication: DYSPEPSIA
     Dosage: 1 PILL EVERY 3.5 WEEKS
     Route: 048
     Dates: start: 20180315, end: 20181106
  5. DHA [Concomitant]
     Active Substance: DIETARY SUPPLEMENT
     Indication: PRODUCT USED FOR UNKNOWN INDICATION
     Dosage: 15 MG, ONCE DAILY (QD)
     Route: 048
     Dates: start: 20170915, end: 20181106
  6. TYLENOL [Concomitant]
     Active Substance: ACETAMINOPHEN
     Indication: PYREXIA
     Dosage: 750 MG PRN
     Route: 048
     Dates: start: 20180215, end: 20180904
  7. TYLENOL [Concomitant]
     Active Substance: ACETAMINOPHEN
     Indication: BACK PAIN
     Dosage: 1 G, ONCE DAILY (QD)
     Route: 048
     Dates: start: 20180905, end: 20180906
  8. CERTOLIZUMAB PEGOL RA [Suspect]
     Active Substance: CERTOLIZUMAB PEGOL
     Indication: ANKYLOSING SPONDYLITIS
     Dosage: 200 MG, 2X/MONTH
     Route: 058
     Dates: start: 20180715, end: 20180918
  9. PRENATAL VITAMINS [Concomitant]
     Active Substance: VITAMINS
     Indication: VITAMIN SUPPLEMENTATION
     Dosage: 2 DF, ONCE DAILY (QD)
     Route: 048
     Dates: start: 20170915, end: 20181106
  10. ZANTAC [Concomitant]
     Active Substance: RANITIDINE HYDROCHLORIDE
     Indication: GASTROOESOPHAGEAL REFLUX DISEASE
     Dosage: 75 MG, 2X/DAY (BID)
     Route: 048
     Dates: start: 20180206, end: 20181106
  11. TYLENOL [Concomitant]
     Active Substance: ACETAMINOPHEN
     Dosage: 750 MG PRN
     Route: 048
     Dates: start: 20180907, end: 20181106

REACTIONS (7)
  - Food poisoning [Unknown]
  - Abdominal discomfort [Recovered/Resolved]
  - Vomiting [Recovered/Resolved]
  - Off label use [Unknown]
  - Rhinovirus infection [Recovered/Resolved]
  - Maternal exposure during pregnancy [Unknown]
  - Gastroenteritis viral [Recovered/Resolved]

NARRATIVE: CASE EVENT DATE: 20180715
